FAERS Safety Report 8469316-6 (Version None)
Quarter: 2012Q2

REPORT INFORMATION
  Report Type: 
  Country: None (occurrence: None)
  Receive Date: 20120626
  Receipt Date: 20120611
  Transmission Date: 20120825
  Serious: Yes (Other)
  Sender: FDA-Public Use
  Company Number: DE-TEVA-342976GER

PATIENT
  Age: 25 Year
  Sex: Female

DRUGS (2)
  1. CITALOPRAM HYDROBROMIDE [Suspect]
     Indication: DEPRESSION
     Route: 065
     Dates: start: 20080101
  2. OPIPRAMOL [Concomitant]
     Indication: DEPRESSION
     Route: 065
     Dates: start: 20080101

REACTIONS (4)
  - OPTIC NEURITIS [None]
  - PARAESTHESIA [None]
  - GALACTORRHOEA [None]
  - MYDRIASIS [None]
